FAERS Safety Report 8554191-1 (Version None)
Quarter: 2012Q3

REPORT INFORMATION
  Report Type: 
  Country: None (occurrence: None)
  Receive Date: 20120731
  Receipt Date: 20120719
  Transmission Date: 20120928
  Serious: Yes (Hospitalization, Other)
  Sender: FDA-Public Use
  Company Number: JP-ELI_LILLY_AND_COMPANY-JP201205003881

PATIENT
  Sex: Female
  Weight: 55.8 kg

DRUGS (11)
  1. AZUNOL [Concomitant]
     Indication: MOUTH ULCERATION
     Dosage: UNK UNK, UNKNOWN
     Route: 065
     Dates: start: 20110804
  2. MAGMITT [Concomitant]
     Indication: CONSTIPATION
     Dosage: 330 MG, TID
     Route: 048
     Dates: start: 20110729, end: 20111208
  3. PURSENNID                               /SCH/ [Concomitant]
     Indication: CONSTIPATION
     Dosage: 12 MG, PRN
     Route: 048
     Dates: start: 20110603
  4. RABEPRAZOLE SODIUM [Concomitant]
     Indication: GASTRODUODENAL ULCER
     Dosage: 10 MG, QD
     Route: 048
     Dates: start: 20110713
  5. LOXONIN [Concomitant]
     Indication: PAIN
     Dosage: 60 MG, TID
     Route: 048
     Dates: start: 20110711, end: 20110822
  6. GEMZAR [Suspect]
     Indication: GALLBLADDER CANCER NON-RESECTABLE
     Dosage: 1550 MG, OTHER
     Route: 042
     Dates: start: 20110801, end: 20110815
  7. ZYPREXA [Suspect]
     Indication: NAUSEA
     Dosage: 5 MG, QD
     Route: 048
     Dates: start: 20110804, end: 20110810
  8. TRAMAL                                  /GFR/ [Concomitant]
     Indication: PAIN
     Dosage: 25 MG, QID
     Route: 048
     Dates: start: 20110803
  9. GEMZAR [Suspect]
     Route: 065
  10. CISPLATIN [Concomitant]
     Indication: GALLBLADDER CANCER NON-RESECTABLE
     Dosage: 39 MG, OTHER
     Route: 042
     Dates: start: 20110801, end: 20110808
  11. TS 1 [Concomitant]
     Indication: GALLBLADDER CANCER NON-RESECTABLE
     Dosage: 120 MG, OTHER
     Route: 048
     Dates: start: 20110801, end: 20110814

REACTIONS (7)
  - OFF LABEL USE [None]
  - DYSGEUSIA [None]
  - FATIGUE [None]
  - PLATELET COUNT DECREASED [None]
  - VOMITING [None]
  - NAUSEA [None]
  - DECREASED APPETITE [None]
